FAERS Safety Report 6683647-1 (Version None)
Quarter: 2010Q2

REPORT INFORMATION
  Report Type: 
  Country: None (occurrence: None)
  Receive Date: 20100416
  Receipt Date: 20100408
  Transmission Date: 20101027
  Serious: Yes (Hospitalization)
  Sender: FDA-Public Use
  Company Number: US-BIOGENIDEC-2010BI010170

PATIENT
  Age: 66 Year
  Sex: Male

DRUGS (17)
  1. TYSABRI [Suspect]
     Indication: MULTIPLE SCLEROSIS
     Route: 042
     Dates: start: 20081218, end: 20100401
  2. SYNTHROID [Concomitant]
  3. JANUVIA [Concomitant]
  4. VITAMIN D [Concomitant]
  5. VITAMIN D [Concomitant]
  6. METFORMIN HCL [Concomitant]
  7. EFFEXOR [Concomitant]
  8. ABILIFY [Concomitant]
  9. ZOLOFT [Concomitant]
  10. GLIPIZIDE [Concomitant]
  11. DEPAKOTE [Concomitant]
  12. ZOCOR [Concomitant]
  13. PROPRANOLOL [Concomitant]
  14. SALIVART [Concomitant]
  15. VALIUM [Concomitant]
  16. IBUPROFEN [Concomitant]
  17. TYLENOL-500 [Concomitant]

REACTIONS (5)
  - AMNESIA [None]
  - DRUG INEFFECTIVE [None]
  - GAIT DISTURBANCE [None]
  - MULTIPLE SCLEROSIS [None]
  - SPINAL COMPRESSION FRACTURE [None]
